FAERS Safety Report 22231404 (Version 3)
Quarter: 2024Q4

REPORT INFORMATION
  Report Type: Spontaneous
  Country: US (occurrence: US)
  Receive Date: 20230420
  Receipt Date: 20241024
  Transmission Date: 20250115
  Serious: Yes (Other)
  Sender: AUROBINDO
  Company Number: US-PFIZER INC-PV202200005422

PATIENT
  Age: 80 Year
  Sex: Male

DRUGS (4)
  1. CLINDAMYCIN [Suspect]
     Active Substance: CLINDAMYCIN
     Indication: Babesiosis
     Dosage: 600 MILLIGRAM, 3 TIMES A DAY
     Route: 065
     Dates: start: 20210802, end: 20210815
  2. QUININE [Suspect]
     Active Substance: QUININE
     Indication: Babesiosis
     Dosage: 648 MILLIGRAM, 3 TIMES A DAY
     Route: 065
     Dates: start: 20210802, end: 20210815
  3. BENDAMUSTINE [Concomitant]
     Active Substance: BENDAMUSTINE
     Indication: Monoclonal B-cell lymphocytosis
     Dosage: UNK
     Route: 065
     Dates: start: 202012
  4. RITUXIMAB [Concomitant]
     Active Substance: RITUXIMAB
     Indication: Monoclonal B-cell lymphocytosis
     Dosage: UNK
     Route: 065
     Dates: start: 202012

REACTIONS (3)
  - Deafness [Unknown]
  - Vomiting [Unknown]
  - Nausea [Unknown]

NARRATIVE: CASE EVENT DATE: 20210201
